FAERS Safety Report 8876480 (Version 2)
Quarter: 2013Q2

REPORT INFORMATION
  Report Type: Spontaneous
  Country: US (occurrence: None)
  Receive Date: 20121025
  Receipt Date: 20130515
  Transmission Date: 20140414
  Serious: Yes (Other)
  Sender: FDA-Public Use
  Company Number: ACO_32533_2012

PATIENT
  Age: 47 Year
  Sex: Female

DRUGS (5)
  1. AMPYRA [Suspect]
     Indication: GAIT DISTURBANCE
     Dates: start: 201208, end: 201209
  2. TRAMADOL (TRAMADOL HYDROCHLORIDE) [Concomitant]
  3. KLONOPIN (CLONAZEPAM) [Concomitant]
  4. CRESTOR (ROSUVASTATIN CALCIUM) [Concomitant]
  5. AMBIEN (ZOLPIDEM TARTRATE) [Concomitant]

REACTIONS (9)
  - Hallucination [None]
  - Abnormal behaviour [None]
  - Personality change [None]
  - Speech disorder [None]
  - Disorientation [None]
  - Insomnia [None]
  - Overdose [None]
  - Muscular weakness [None]
  - Drug ineffective [None]
